FAERS Safety Report 8932777 (Version 1)
Quarter: 2012Q4

REPORT INFORMATION
  Report Type: Spontaneous
  Country: US (occurrence: None)
  Receive Date: 20121126
  Receipt Date: 20121126
  Transmission Date: 20130627
  Serious: No
  Sender: FDA-Public Use
  Company Number: None

PATIENT
  Age: 30 Year
  Sex: Female

DRUGS (1)
  1. CREST COMPLETE MULTI-BENEFIT EXTRA WHITE PLUS CRYSTAL CLEAN ANTI BAC [Suspect]
     Dosage: 219771  june 2014

REACTIONS (4)
  - Pain [None]
  - Burning sensation [None]
  - Gingival pain [None]
  - Gingival erythema [None]
